FAERS Safety Report 4501389-5 (Version None)
Quarter: 2004Q4

REPORT INFORMATION
  Report Type: 
  Country: None (occurrence: None)
  Receive Date: 20041110
  Receipt Date: 20041027
  Transmission Date: 20050328
  Serious: Yes (Other)
  Sender: FDA-Public Use
  Company Number: 20041000458

PATIENT

DRUGS (1)
  1. DURAMORPH (MORPHINE SULFATE) BAXTER [Suspect]

REACTIONS (2)
  - ENCEPHALOPATHY [None]
  - MENTAL IMPAIRMENT [None]
